FAERS Safety Report 4717555-X (Version None)
Quarter: 2005Q3

REPORT INFORMATION
  Report Type: 
  Country: None (occurrence: None)
  Receive Date: 20050711
  Receipt Date: 20050404
  Transmission Date: 20060218
  Serious: Yes (Hospitalization)
  Sender: FDA-Public Use
  Company Number: A03200500937

PATIENT
  Age: 70 Year
  Sex: Male
  Weight: 92.0802 kg

DRUGS (10)
  1. UROXATRAL [Suspect]
     Indication: BENIGN PROSTATIC HYPERPLASIA
     Dosage: 10 MG OD - ORAL
     Route: 048
     Dates: start: 20040907, end: 20040909
  2. METOPROLOL SUCCINATE [Concomitant]
  3. RAMIPRIL [Concomitant]
  4. DIGOXIN [Concomitant]
  5. WARFARIN SODIUM [Concomitant]
  6. AMIODARONE [Concomitant]
  7. ROSUVASTATIN [Concomitant]
  8. ASPIRIN [Concomitant]
  9. LEVOTHYROXINE SODIUM [Concomitant]
  10. ROSIGLITAZONE MALEATE [Concomitant]

REACTIONS (2)
  - BLOOD PRESSURE SYSTOLIC DECREASED [None]
  - DIZZINESS [None]
